FAERS Safety Report 24668526 (Version 5)
Quarter: 2025Q1

REPORT INFORMATION
  Report Type: Report from Study
  Country: CA (occurrence: CA)
  Receive Date: 20241127
  Receipt Date: 20250128
  Transmission Date: 20250409
  Serious: Yes (Hospitalization, Other)
  Sender: TAKEDA
  Company Number: CA-TAKEDA-2024TUS117687

PATIENT
  Sex: Male

DRUGS (8)
  1. VEDOLIZUMAB [Suspect]
     Active Substance: VEDOLIZUMAB
     Indication: Crohn^s disease
     Dates: start: 20240617, end: 20241121
  2. VEDOLIZUMAB [Suspect]
     Active Substance: VEDOLIZUMAB
     Dates: start: 20241227, end: 20241227
  3. CODEINE [Concomitant]
     Active Substance: CODEINE
  4. ALFUZOSIN [Concomitant]
     Active Substance: ALFUZOSIN
  5. FAMOTIDINE [Concomitant]
     Active Substance: FAMOTIDINE
  6. VITAMIN D [Concomitant]
     Active Substance: VITAMIN D NOS
  7. PREDNISONE [Concomitant]
     Active Substance: PREDNISONE
  8. IRON [Concomitant]
     Active Substance: IRON
     Indication: Supplementation therapy

REACTIONS (3)
  - Intestinal obstruction [Recovered/Resolved]
  - Small intestinal obstruction [Not Recovered/Not Resolved]
  - Therapy non-responder [Unknown]
